FAERS Safety Report 15771051 (Version 2)
Quarter: 2019Q2

REPORT INFORMATION
  Report Type: Report from Study
  Country: JP (occurrence: JP)
  Receive Date: 20181228
  Receipt Date: 20190412
  Transmission Date: 20190711
  Serious: Yes (Other)
  Sender: FDA-Public Use
  Company Number: PHJP2017JP024319

PATIENT
  Age: 46 Year
  Sex: Male

DRUGS (8)
  1. BORTEZOMIB. [Concomitant]
     Active Substance: BORTEZOMIB
     Indication: PLASMA CELL MYELOMA
     Dosage: 1.3 MG/M2, QW2
     Route: 058
     Dates: start: 20160518, end: 20160607
  2. FARYDAK [Suspect]
     Active Substance: PANOBINOSTAT
     Dosage: 15 MG, QD
     Route: 048
     Dates: start: 20160705, end: 20160712
  3. FARYDAK [Suspect]
     Active Substance: PANOBINOSTAT
     Dosage: 20 MG, QD
     Route: 048
     Dates: start: 20160614, end: 20160621
  4. DEXAMETHASONE. [Concomitant]
     Active Substance: DEXAMETHASONE
     Indication: PLASMA CELL MYELOMA
     Dosage: UNK
     Route: 065
     Dates: start: 20160614, end: 20160621
  5. DEXAMETHASONE. [Concomitant]
     Active Substance: DEXAMETHASONE
     Dosage: UNK
     Route: 065
     Dates: start: 20160705, end: 20160712
  6. FARYDAK [Suspect]
     Active Substance: PANOBINOSTAT
     Indication: PLASMA CELL MYELOMA
     Dosage: 20 MG, QD
     Route: 048
     Dates: start: 20160518, end: 20160607
  7. BORTEZOMIB. [Concomitant]
     Active Substance: BORTEZOMIB
     Dosage: 1.3 MG/M2, QW2
     Route: 058
     Dates: start: 20160614, end: 20160621
  8. BORTEZOMIB. [Concomitant]
     Active Substance: BORTEZOMIB
     Dosage: 1.3 MG/M2, QW
     Route: 058
     Dates: start: 20160705, end: 20160712

REACTIONS (3)
  - Malaise [Recovering/Resolving]
  - Platelet count decreased [Recovering/Resolving]
  - White blood cell count decreased [Unknown]

NARRATIVE: CASE EVENT DATE: 20160525
